FAERS Safety Report 25714498 (Version 2)
Quarter: 2025Q3

REPORT INFORMATION
  Report Type: Report from Study
  Country: US (occurrence: US)
  Receive Date: 20250822
  Receipt Date: 20250924
  Transmission Date: 20251021
  Serious: Yes (Hospitalization)
  Sender: TAKEDA
  Company Number: US-TAKEDA-2025TUS071598

PATIENT
  Sex: Male

DRUGS (43)
  1. MARIBAVIR [Suspect]
     Active Substance: MARIBAVIR
     Indication: Cytomegalovirus infection
  2. MARIBAVIR [Suspect]
     Active Substance: MARIBAVIR
     Dosage: 400 MILLIGRAM, BID
  3. GANCICLOVIR [Concomitant]
     Active Substance: GANCICLOVIR
  4. ACYCLOVIR [Concomitant]
     Active Substance: ACYCLOVIR
     Dosage: 400 UNK, BID
  5. LETERMOVIR [Concomitant]
     Active Substance: LETERMOVIR
  6. VALGANCICLOVIR [Concomitant]
     Active Substance: VALGANCICLOVIR
  7. ALLOPURINOL [Concomitant]
     Active Substance: ALLOPURINOL
  8. AMLODIPINE [Concomitant]
     Active Substance: AMLODIPINE BESYLATE
  9. DAPTOMYCIN [Concomitant]
     Active Substance: DAPTOMYCIN
  10. DARBEPOETIN ALFA [Concomitant]
     Active Substance: DARBEPOETIN ALFA
  11. ERGOCALCIFEROL [Concomitant]
     Active Substance: ERGOCALCIFEROL
  12. ELTROMBOPAG OLAMINE [Concomitant]
     Active Substance: ELTROMBOPAG OLAMINE
  13. FENTANYL [Concomitant]
     Active Substance: FENTANYL
  14. HYDRALAZINE [Concomitant]
     Active Substance: HYDRALAZINE HYDROCHLORIDE
  15. HYDROMORPHONE [Concomitant]
     Active Substance: HYDROMORPHONE
  16. HYDROMORPHONE [Concomitant]
     Active Substance: HYDROMORPHONE
  17. LANSOPRAZOLE [Concomitant]
     Active Substance: LANSOPRAZOLE
  18. LORAZEPAM [Concomitant]
     Active Substance: LORAZEPAM
  19. LOSARTAN [Concomitant]
     Active Substance: LOSARTAN
  20. MAGNESIUM SULFATE [Concomitant]
     Active Substance: MAGNESIUM SULFATE
  21. MIRTAZAPINE [Concomitant]
     Active Substance: MIRTAZAPINE
  22. NYSTATIN [Concomitant]
     Active Substance: NYSTATIN
  23. ONDANSETRON [Concomitant]
     Active Substance: ONDANSETRON
  24. POSACONAZOLE [Concomitant]
     Active Substance: POSACONAZOLE
  25. POTASSIUM CHLORIDE [Concomitant]
     Active Substance: POTASSIUM CHLORIDE
  26. PREDNISONE [Concomitant]
     Active Substance: PREDNISONE
  27. PREGABALIN [Concomitant]
     Active Substance: PREGABALIN
  28. PREGABALIN [Concomitant]
     Active Substance: PREGABALIN
  29. QUETIAPINE [Concomitant]
     Active Substance: QUETIAPINE
  30. QUETIAPINE [Concomitant]
     Active Substance: QUETIAPINE
  31. QUETIAPINE [Concomitant]
     Active Substance: QUETIAPINE
  32. TACROLIMUS [Concomitant]
     Active Substance: TACROLIMUS
  33. THIAMINE [Concomitant]
     Active Substance: THIAMINE
  34. URSODIOL [Concomitant]
     Active Substance: URSODIOL
  35. COLLAGENASE [Concomitant]
     Active Substance: COLLAGENASE CLOSTRIDIUM HISTOLYTICUM
  36. CYANOCOBALAMIN [Concomitant]
     Active Substance: CYANOCOBALAMIN
  37. DULOXETINE [Concomitant]
     Active Substance: DULOXETINE
  38. IPRATROPIUM BROMIDE AND ALBUTEROL SULFATE [Concomitant]
     Active Substance: ALBUTEROL SULFATE\IPRATROPIUM BROMIDE
  39. LOPERAMIDE [Concomitant]
     Active Substance: LOPERAMIDE
  40. MECLIZINE [Concomitant]
     Active Substance: MECLIZINE HYDROCHLORIDE
  41. PROCHLORPERAZINE [Concomitant]
     Active Substance: PROCHLORPERAZINE
  42. SIMETHICONE (DIMETHICONE) [Concomitant]
     Active Substance: DIMETHICONE
  43. FOSCARNET [Concomitant]
     Active Substance: FOSCARNET

REACTIONS (16)
  - Infection [Unknown]
  - Ecchymosis [Unknown]
  - Asthenia [Unknown]
  - Breath sounds abnormal [Unknown]
  - Skin abrasion [Unknown]
  - Scab [Unknown]
  - Dry skin [Unknown]
  - Flank pain [Unknown]
  - Haemoglobin abnormal [Unknown]
  - Haematocrit abnormal [Unknown]
  - Pain [Unknown]
  - Cheilitis [Unknown]
  - Abdominal tenderness [Unknown]
  - Muscular weakness [Unknown]
  - Oedema peripheral [Unknown]
  - Contusion [Unknown]
